FAERS Safety Report 8554971-2 (Version None)
Quarter: 2012Q3

REPORT INFORMATION
  Report Type: 
  Country: None (occurrence: None)
  Receive Date: 20120731
  Receipt Date: 20120730
  Transmission Date: 20120928
  Serious: Yes (Hospitalization)
  Sender: FDA-Public Use
  Company Number: US-PFIZER INC-2012168229

PATIENT
  Sex: Male
  Weight: 98.2 kg

DRUGS (9)
  1. EFFEXOR [Concomitant]
     Indication: ANXIETY
     Dosage: 37.5 MG, 1X/DAY
     Route: 048
     Dates: start: 20100101
  2. OMEPRAZOLE [Concomitant]
     Indication: GASTROOESOPHAGEAL REFLUX DISEASE
     Dosage: 20 MG, 1X/DAY
     Route: 048
     Dates: start: 20110601
  3. LOMOTIL [Concomitant]
     Indication: DIARRHOEA
     Dosage: 1-2 TAB AS NEEDED
     Route: 048
     Dates: start: 20110919
  4. ALLEGRA [Concomitant]
     Indication: MULTIPLE ALLERGIES
     Dosage: 1 TABLET AS NEEDED
     Route: 048
     Dates: start: 20030101
  5. REGENECARE [Concomitant]
     Indication: LIMB DISCOMFORT
     Dosage: 2 %, 3-4/ DAY
     Route: 061
     Dates: start: 20120109
  6. TOPROL-XL [Concomitant]
     Indication: HYPERTENSION
     Dosage: UNK
     Route: 048
     Dates: start: 20070801
  7. CLONIDINE [Concomitant]
     Indication: HYPERTENSION
     Dosage: 0.1 MG, AS NEEDED
     Route: 048
     Dates: start: 20101118
  8. AXITINIB [Suspect]
     Indication: METASTATIC RENAL CELL CARCINOMA
     Dosage: 3 MG, 2X/DAY  POST LEAD-IN PERIOD
     Route: 048
     Dates: start: 20100915, end: 20120708
  9. LISINOPRIL AND HYDROCHLOROTHIAZIDE [Concomitant]
     Indication: HYPERTENSION
     Dosage: 10/125 MG 1X/DAY
     Route: 048
     Dates: start: 20110302

REACTIONS (1)
  - INTESTINAL FISTULA [None]
